FAERS Safety Report 21403873 (Version 3)
Quarter: 2022Q4

REPORT INFORMATION
  Report Type: Spontaneous
  Country: EC (occurrence: EC)
  Receive Date: 20221003
  Receipt Date: 20221123
  Transmission Date: 20230113
  Serious: Yes (Hospitalization, Other)
  Sender: FDA-Public Use
  Company Number: EC-BAYER-2022A133533

PATIENT
  Age: 55 Year
  Sex: Male

DRUGS (1)
  1. NEXAVAR [Suspect]
     Active Substance: SORAFENIB
     Indication: Thyroid cancer
     Dosage: 800 MG, UNK

REACTIONS (15)
  - Coma [None]
  - Haemoptysis [None]
  - Thrombosis [None]
  - Burning sensation [None]
  - Skin fissures [None]
  - Wound [None]
  - Skin exfoliation [None]
  - Skin mass [None]
  - Pruritus [None]
  - Skin exfoliation [None]
  - Dry mouth [None]
  - Underweight [None]
  - Pain in extremity [None]
  - Blister [None]
  - Mouth haemorrhage [None]
